FAERS Safety Report 4371076-5 (Version None)
Quarter: 2004Q2

REPORT INFORMATION
  Report Type: 
  Country: None (occurrence: None)
  Receive Date: 20040604
  Receipt Date: 20040514
  Transmission Date: 20050107
  Serious: Yes (Hospitalization)
  Sender: FDA-Public Use
  Company Number: FR-MERCK-0405FRA00060

PATIENT
  Age: 62 Year
  Sex: Male
  Weight: 119 kg

DRUGS (6)
  1. AMLODIPINE BESYLATE [Concomitant]
     Indication: HYPERTENSION
     Route: 048
  2. ASPIRIN LYSINE [Suspect]
     Indication: THROMBOSIS PROPHYLAXIS
     Route: 048
     Dates: end: 20040101
  3. ATENOLOL [Concomitant]
     Indication: HYPERTENSION
     Route: 048
  4. FENOFIBRATE [Concomitant]
     Route: 048
  5. HYDROCHLOROTHIAZIDE AND IRBESARTAN [Concomitant]
     Indication: HYPERTENSION
     Route: 048
  6. VIOXX [Suspect]
     Route: 048
     Dates: end: 20040101

REACTIONS (7)
  - ANAEMIA [None]
  - BLOOD FOLATE DECREASED [None]
  - BLOOD IRON DECREASED [None]
  - SERUM FERRITIN DECREASED [None]
  - TRANSFERRIN INCREASED [None]
  - TRANSFERRIN SATURATION DECREASED [None]
  - VITAMIN B12 DECREASED [None]
